FAERS Safety Report 7717556-3 (Version None)
Quarter: 2011Q3

REPORT INFORMATION
  Report Type: 
  Country: None (occurrence: None)
  Receive Date: 20110823
  Receipt Date: 20070126
  Transmission Date: 20111222
  Serious: Yes (Other)
  Sender: FDA-Public Use
  Company Number: 2007023497

PATIENT

DRUGS (1)
  1. ATGAM [Suspect]

REACTIONS (1)
  - PLATELET COUNT DECREASED [None]
